FAERS Safety Report 9251607 (Version 1)
Quarter: 2013Q2

REPORT INFORMATION
  Report Type: Spontaneous
  Country: IT (occurrence: IT)
  Receive Date: 20130424
  Receipt Date: 20130424
  Transmission Date: 20140414
  Serious: Yes (Hospitalization, Other)
  Sender: FDA-Public Use
  Company Number: IT-ELI_LILLY_AND_COMPANY-IT201304005144

PATIENT
  Sex: Female

DRUGS (4)
  1. PROZAC [Suspect]
     Indication: DRUG ABUSE
     Dosage: 4 DF, SINGLE
     Route: 048
     Dates: start: 20130314, end: 20130314
  2. LAMOTRIGINE [Concomitant]
     Indication: DRUG ABUSE
     Dosage: 300 MG, SINGLE
     Route: 048
     Dates: start: 20130314, end: 20130314
  3. TRAZODONE HYDROCHLORIDE [Concomitant]
     Indication: DRUG ABUSE
     Dosage: 300 MG, SINGLE
     Route: 048
     Dates: start: 20130314, end: 20130314
  4. CHLORDESMETHYLDIAZEPAM [Concomitant]
     Dosage: 4 DF, UNK
     Dates: start: 20130314, end: 20130414

REACTIONS (3)
  - Intentional self-injury [Unknown]
  - Confusional state [Unknown]
  - Off label use [Unknown]
